FAERS Safety Report 13187619 (Version 1)
Quarter: 2017Q1

REPORT INFORMATION
  Report Type: Report from Study
  Country: JP (occurrence: JP)
  Receive Date: 20170206
  Receipt Date: 20170206
  Transmission Date: 20170428
  Serious: Yes (Death, Hospitalization, Other)
  Sender: FDA-Public Use
  Company Number: JP-ASTELLAS-2006JP000621

PATIENT
  Age: 41 Year
  Sex: Male
  Weight: 37 kg

DRUGS (46)
  1. TACROLIMUS. [Suspect]
     Active Substance: TACROLIMUS
     Route: 048
     Dates: start: 20041206, end: 20041206
  2. TACROLIMUS. [Suspect]
     Active Substance: TACROLIMUS
     Dosage: 0.5 MG, TWICE DAILY
     Route: 048
     Dates: start: 20041218, end: 20041218
  3. TACROLIMUS. [Suspect]
     Active Substance: TACROLIMUS
     Dosage: 0.7 MG, TWICE DAILY
     Route: 048
     Dates: start: 20050108, end: 20050110
  4. TACROLIMUS. [Suspect]
     Active Substance: TACROLIMUS
     Route: 048
     Dates: start: 20050111, end: 20050111
  5. TACROLIMUS. [Suspect]
     Active Substance: TACROLIMUS
     Dosage: 0.2 MG, TWICE DAILY
     Route: 048
     Dates: start: 20050123, end: 20050126
  6. TACROLIMUS. [Suspect]
     Active Substance: TACROLIMUS
     Route: 048
     Dates: start: 20050212, end: 20050214
  7. CELLCEPT [Suspect]
     Active Substance: MYCOPHENOLATE MOFETIL\MYCOPHENOLATE MOFETIL HYDROCHLORIDE
     Route: 048
     Dates: start: 20041127, end: 20041130
  8. RITUXAN [Suspect]
     Active Substance: RITUXIMAB
     Indication: HEART TRANSPLANT
     Route: 042
     Dates: start: 20041201, end: 20041202
  9. TACROLIMUS. [Suspect]
     Active Substance: TACROLIMUS
     Route: 048
     Dates: start: 20041202, end: 20041205
  10. TACROLIMUS. [Suspect]
     Active Substance: TACROLIMUS
     Dosage: UNK UNK, UNKNOWN FREQ.
     Route: 048
     Dates: start: 20041219, end: 20050103
  11. TACROLIMUS. [Suspect]
     Active Substance: TACROLIMUS
     Route: 048
     Dates: start: 20050107, end: 20050107
  12. TACROLIMUS. [Suspect]
     Active Substance: TACROLIMUS
     Route: 048
     Dates: start: 20050131, end: 20050131
  13. TACROLIMUS. [Suspect]
     Active Substance: TACROLIMUS
     Route: 048
     Dates: start: 20050204, end: 20050206
  14. TACROLIMUS. [Suspect]
     Active Substance: TACROLIMUS
     Dosage: 0.6 MG, TWICE DAILY
     Route: 048
     Dates: start: 20050215, end: 20050301
  15. CELLCEPT [Suspect]
     Active Substance: MYCOPHENOLATE MOFETIL\MYCOPHENOLATE MOFETIL HYDROCHLORIDE
     Route: 048
     Dates: start: 20041217, end: 20041217
  16. TACROLIMUS. [Suspect]
     Active Substance: TACROLIMUS
     Route: 048
     Dates: start: 20041208, end: 20041214
  17. TACROLIMUS. [Suspect]
     Active Substance: TACROLIMUS
     Dosage: 0.5 MG, TWICE DAILY
     Route: 048
     Dates: start: 20050104, end: 20050104
  18. TACROLIMUS. [Suspect]
     Active Substance: TACROLIMUS
     Route: 048
     Dates: start: 20050209, end: 20050211
  19. TACROLIMUS. [Suspect]
     Active Substance: TACROLIMUS
     Route: 048
     Dates: end: 20050316
  20. PREDONINE [Suspect]
     Active Substance: PREDNISOLONE
     Route: 048
     Dates: start: 20041220, end: 20050316
  21. LYMPHOGLOBULINE [Suspect]
     Active Substance: LAPINE T-LYMPHOCYTE IMMUNE GLOBULIN
     Indication: PRODUCT USED FOR UNKNOWN INDICATION
     Dosage: 400 UG, ONCE DAILY
     Route: 042
     Dates: start: 20041121, end: 20041129
  22. DOPAMINE HYDROCHLORIDE. [Concomitant]
     Active Substance: DOPAMINE HYDROCHLORIDE
     Indication: RENAL FAILURE
     Dosage: UNK UNK, UNKNOWN FREQ.
     Route: 042
     Dates: start: 20041120, end: 20050124
  23. TACROLIMUS. [Suspect]
     Active Substance: TACROLIMUS
     Dosage: 0.9 MG, ONCE DAILY
     Route: 048
     Dates: start: 20050119, end: 20050119
  24. TACROLIMUS. [Suspect]
     Active Substance: TACROLIMUS
     Dosage: 0.4 MG, TWICE DAILY
     Route: 048
     Dates: start: 20050128, end: 20050129
  25. CELLCEPT [Suspect]
     Active Substance: MYCOPHENOLATE MOFETIL\MYCOPHENOLATE MOFETIL HYDROCHLORIDE
     Route: 048
     Dates: start: 20041123, end: 20041126
  26. CELLCEPT [Suspect]
     Active Substance: MYCOPHENOLATE MOFETIL\MYCOPHENOLATE MOFETIL HYDROCHLORIDE
     Route: 048
     Dates: start: 20041206, end: 20041206
  27. TACROLIMUS. [Suspect]
     Active Substance: TACROLIMUS
     Dosage: 0.5 MG, ONCE DAILY
     Route: 048
     Dates: start: 20050105, end: 20050105
  28. TACROLIMUS. [Suspect]
     Active Substance: TACROLIMUS
     Dosage: 0.5 MG, ONCE DAILY
     Route: 048
     Dates: start: 20050127, end: 20050127
  29. TACROLIMUS. [Suspect]
     Active Substance: TACROLIMUS
     Dosage: 0.9 MG, ONCE DAILY
     Route: 048
     Dates: start: 20050130, end: 20050130
  30. TACROLIMUS. [Suspect]
     Active Substance: TACROLIMUS
     Route: 048
     Dates: start: 20050203, end: 20050203
  31. CELLCEPT [Suspect]
     Active Substance: MYCOPHENOLATE MOFETIL\MYCOPHENOLATE MOFETIL HYDROCHLORIDE
     Route: 048
     Dates: start: 20041207, end: 20041211
  32. CELLCEPT [Suspect]
     Active Substance: MYCOPHENOLATE MOFETIL\MYCOPHENOLATE MOFETIL HYDROCHLORIDE
     Route: 048
     Dates: start: 20041212, end: 20041216
  33. CELLCEPT [Suspect]
     Active Substance: MYCOPHENOLATE MOFETIL\MYCOPHENOLATE MOFETIL HYDROCHLORIDE
     Route: 048
     Dates: start: 20041219, end: 20050315
  34. ENDOXAN [Suspect]
     Active Substance: CYCLOPHOSPHAMIDE
     Indication: HEART TRANSPLANT
     Route: 042
     Dates: start: 20041201, end: 20041204
  35. TACROLIMUS. [Suspect]
     Active Substance: TACROLIMUS
     Route: 048
     Dates: start: 20041215, end: 20041217
  36. TACROLIMUS. [Suspect]
     Active Substance: TACROLIMUS
     Dosage: 0.4 MG, TWICE DAILY
     Route: 048
     Dates: start: 20050120, end: 20050121
  37. TACROLIMUS. [Suspect]
     Active Substance: TACROLIMUS
     Dosage: 0.6 MG, ONCE DAILY
     Route: 048
     Dates: start: 20050122, end: 20050122
  38. TACROLIMUS. [Suspect]
     Active Substance: TACROLIMUS
     Route: 048
     Dates: start: 20050201, end: 20050202
  39. TACROLIMUS. [Suspect]
     Active Substance: TACROLIMUS
     Indication: HEART TRANSPLANT
     Route: 048
     Dates: start: 20041201, end: 20041201
  40. TACROLIMUS. [Suspect]
     Active Substance: TACROLIMUS
     Route: 048
     Dates: start: 20041207, end: 20041207
  41. TACROLIMUS. [Suspect]
     Active Substance: TACROLIMUS
     Route: 048
     Dates: start: 20050208, end: 20050208
  42. CELLCEPT [Suspect]
     Active Substance: MYCOPHENOLATE MOFETIL\MYCOPHENOLATE MOFETIL HYDROCHLORIDE
     Route: 048
     Dates: start: 20041218, end: 20041218
  43. TACROLIMUS. [Suspect]
     Active Substance: TACROLIMUS
     Dosage: 0.5 MG, TWICE DAILY
     Route: 048
     Dates: start: 20050106, end: 20050106
  44. TACROLIMUS. [Suspect]
     Active Substance: TACROLIMUS
     Dosage: 0.5 MG, TWICE DAILY
     Route: 048
     Dates: start: 20050112, end: 20050118
  45. CELLCEPT [Suspect]
     Active Substance: MYCOPHENOLATE MOFETIL\MYCOPHENOLATE MOFETIL HYDROCHLORIDE
     Indication: PRODUCT USED FOR UNKNOWN INDICATION
     Route: 048
     Dates: start: 20041122, end: 20041122
  46. PREDONINE [Suspect]
     Active Substance: PREDNISOLONE
     Indication: HEART TRANSPLANT
     Route: 048
     Dates: start: 20041126, end: 20041219

REACTIONS (4)
  - Bacterial sepsis [Fatal]
  - Candida pneumonia [Fatal]
  - Herpes zoster disseminated [Fatal]
  - Pneumonia aspiration [Fatal]

NARRATIVE: CASE EVENT DATE: 20041212
